FAERS Safety Report 8465706-6 (Version None)
Quarter: 2012Q2

REPORT INFORMATION
  Report Type: 
  Country: None (occurrence: None)
  Receive Date: 20120626
  Receipt Date: 20120618
  Transmission Date: 20120825
  Serious: Yes (Death)
  Sender: FDA-Public Use
  Company Number: US-PFIZER INC-2012148562

PATIENT
  Age: 27 Year
  Sex: Male

DRUGS (5)
  1. OXYMORPHONE [Suspect]
  2. ALPRAZOLAM [Suspect]
  3. OXYCODONE HCL [Suspect]
  4. COCAINE [Suspect]
  5. KEPPRA [Suspect]

REACTIONS (2)
  - ACCIDENTAL OVERDOSE [None]
  - TOXICITY TO VARIOUS AGENTS [None]
